FAERS Safety Report 21336613 (Version 1)
Quarter: 2022Q3

REPORT INFORMATION
  Report Type: Spontaneous
  Country: DE (occurrence: DE)
  Receive Date: 20220915
  Receipt Date: 20220915
  Transmission Date: 20221026
  Serious: Yes (Other)
  Sender: FDA-Public Use
  Company Number: DE-MLMSERVICE-20220830-3764513-1

PATIENT
  Age: 52 Year
  Sex: Male

DRUGS (3)
  1. ETOPOSIDE [Suspect]
     Active Substance: ETOPOSIDE
     Indication: Testicular seminoma (pure)
     Dosage: CUMULATIVE DOSE : 1 CYCLICAL
  2. CISPLATIN [Suspect]
     Active Substance: CISPLATIN
     Indication: Metastases to retroperitoneum
     Dosage: CUMULATIVE DOSE : 1 CYCLICAL
  3. BLEOMYCIN [Suspect]
     Active Substance: BLEOMYCIN SULFATE
     Indication: Metastases to retroperitoneum
     Dosage: CUMULATIVE DOSE : 1 CYCLICAL

REACTIONS (2)
  - Pulmonary embolism [Unknown]
  - Off label use [Unknown]
